FAERS Safety Report 5347075-3 (Version None)
Quarter: 2007Q2

REPORT INFORMATION
  Report Type: 
  Country: None (occurrence: None)
  Receive Date: 20070604
  Receipt Date: 20070524
  Transmission Date: 20071010
  Serious: Yes (Disabling)
  Sender: FDA-Public Use
  Company Number: PERIO-2007-0009

PATIENT
  Sex: 0

DRUGS (2)
  1. PERIOSTAT [Suspect]
     Dates: start: 20040101
  2. DOXYCYCLINE [Suspect]

REACTIONS (2)
  - VISION BLURRED [None]
  - VISUAL ACUITY REDUCED [None]
